FAERS Safety Report 5252248-4 (Version None)
Quarter: 2007Q1

REPORT INFORMATION
  Report Type: 
  Country: None (occurrence: None)
  Receive Date: 20070301
  Receipt Date: 20070221
  Transmission Date: 20070707
  Serious: Yes (Hospitalization)
  Sender: FDA-Public Use
  Company Number: US-JNJFOC-20061201778

PATIENT
  Sex: Female

DRUGS (16)
  1. REMICADE [Suspect]
     Route: 042
  2. REMICADE [Suspect]
     Route: 042
  3. REMICADE [Suspect]
     Route: 042
  4. REMICADE [Suspect]
     Indication: RHEUMATOID ARTHRITIS
     Route: 042
  5. SALSALATE [Concomitant]
  6. ASPIRIN [Concomitant]
  7. PLAQUENIL [Concomitant]
  8. ARAVA [Concomitant]
  9. ACTONEL [Concomitant]
  10. TYLENOL [Concomitant]
  11. VERAPAMIL [Concomitant]
  12. ASCORBIC ACID [Concomitant]
  13. ADVAIR DISKUS 100/50 [Concomitant]
  14. ULTRACET [Concomitant]
  15. TOPROL-XL [Concomitant]
  16. OSCAL [Concomitant]

REACTIONS (4)
  - CARDIAC FAILURE CONGESTIVE [None]
  - CHRONIC OBSTRUCTIVE PULMONARY DISEASE [None]
  - CYSTITIS [None]
  - DIASTOLIC DYSFUNCTION [None]
